FAERS Safety Report 17150220 (Version 1)
Quarter: 2019Q4

REPORT INFORMATION
  Report Type: Report from Study
  Country: US (occurrence: US)
  Receive Date: 20191213
  Receipt Date: 20191213
  Transmission Date: 20200122
  Serious: Yes (Death)
  Sender: FDA-Public Use
  Company Number: US-ROCHE-2467778

PATIENT
  Sex: Male

DRUGS (26)
  1. VITAMIN B1 [Concomitant]
     Active Substance: THIAMINE HYDROCHLORIDE
     Route: 048
  2. HYDROMORPHONE [Concomitant]
     Active Substance: HYDROMORPHONE
     Dosage: PRN
     Route: 042
  3. GLUCAGON. [Concomitant]
     Active Substance: GLUCAGON
     Dosage: AS INDICATED,PRN
     Route: 030
  4. SEVELAMER CARBONATE. [Concomitant]
     Active Substance: SEVELAMER CARBONATE
     Dosage: WITH MEALS
     Route: 048
  5. DOCUSATE;SENNA [Concomitant]
     Route: 048
  6. DOCUSATE;SENNA [Concomitant]
     Route: 048
  7. TRIAMCINOLONE [Concomitant]
     Active Substance: TRIAMCINOLONE
     Route: 061
  8. ASPIRIN [ACETYLSALICYLIC ACID] [Concomitant]
     Active Substance: ASPIRIN
     Route: 048
  9. DOXYCYCLINE. [Concomitant]
     Active Substance: DOXYCYCLINE
     Route: 058
  10. AMLODIPINE [Concomitant]
     Active Substance: AMLODIPINE BESYLATE
     Route: 048
  11. DEXTROSE. [Concomitant]
     Active Substance: DEXTROSE
     Dosage: AS INDICATED
     Route: 042
  12. LORATADINE. [Concomitant]
     Active Substance: LORATADINE
     Route: 048
  13. ATORVASTATIN [Concomitant]
     Active Substance: ATORVASTATIN
     Dosage: CONSUME AT NIGHT
     Route: 048
  14. HEPARIN [Concomitant]
     Active Substance: HEPARIN SODIUM
     Route: 058
  15. PREDNISONE. [Concomitant]
     Active Substance: PREDNISONE
     Route: 048
  16. HYDROMORPHONE [Concomitant]
     Active Substance: HYDROMORPHONE
     Dosage: PRN
     Route: 042
  17. RITUXAN [Suspect]
     Active Substance: RITUXIMAB
     Indication: PEMPHIGOID
     Route: 065
  18. HYDRALAZINE [Concomitant]
     Active Substance: HYDRALAZINE HYDROCHLORIDE
     Route: 048
  19. OXYCODONE [Concomitant]
     Active Substance: OXYCODONE
     Dosage: PRN
     Route: 048
  20. DEXTROSE. [Concomitant]
     Active Substance: DEXTROSE
     Dosage: AS INDICATED, PRN
     Route: 042
  21. OXYCODONE [Concomitant]
     Active Substance: OXYCODONE
     Dosage: PRN
     Route: 048
  22. NIACINAMIDE [Concomitant]
     Active Substance: NIACINAMIDE
     Route: 048
  23. CLOBETASOL [Concomitant]
     Active Substance: CLOBETASOL
     Route: 061
  24. INSULIN LISPRO [Concomitant]
     Active Substance: INSULIN LISPRO
     Dosage: WITH MEAL
     Route: 065
  25. SILVER SULFADIAZINE. [Concomitant]
     Active Substance: SILVER SULFADIAZINE
     Dosage: 1 %
     Route: 061
  26. PEPCID [Concomitant]
     Active Substance: FAMOTIDINE
     Route: 048

REACTIONS (1)
  - Death [Fatal]
